FAERS Safety Report 6699966-9 (Version None)
Quarter: 2010Q2

REPORT INFORMATION
  Report Type: 
  Country: None (occurrence: None)
  Receive Date: 20100428
  Receipt Date: 20100416
  Transmission Date: 20101027
  Serious: No
  Sender: FDA-Public Use
  Company Number: US-B.I. PHARMACEUTICALS,INC./RIDGEFIELD-2010-BP-03687BP

PATIENT
  Sex: Male

DRUGS (7)
  1. CATAPRES-TTS-1 [Suspect]
     Indication: HYPERTENSION
     Dosage: 0.2 MG
     Route: 061
     Dates: start: 20100101
  2. CATAPRES-TTS-1 [Suspect]
     Indication: BLOOD PRESSURE ABNORMAL
  3. KLOR-CON M10 [Concomitant]
  4. ASPIRIN [Concomitant]
  5. SIMVASTATIN [Concomitant]
  6. VITAMIN B1 TAB [Concomitant]
  7. FOLIC ACID [Concomitant]

REACTIONS (2)
  - APPLICATION SITE PRURITUS [None]
  - APPLICATION SITE SCAB [None]
